FAERS Safety Report 12617802 (Version 1)
Quarter: 2016Q3

REPORT INFORMATION
  Report Type: Spontaneous
  Country: US (occurrence: US)
  Receive Date: 20160803
  Receipt Date: 20160803
  Transmission Date: 20161109
  Serious: No
  Sender: FDA-Public Use
  Company Number: US-BAYER-2016-142568

PATIENT
  Sex: Female

DRUGS (1)
  1. CLARITIN [Suspect]
     Active Substance: LORATADINE
     Indication: NASAL CONGESTION
     Dosage: 1 DF, UNK
     Dates: start: 20160719, end: 20160719

REACTIONS (2)
  - Dry mouth [None]
  - Product use issue [None]

NARRATIVE: CASE EVENT DATE: 20160719
